FAERS Safety Report 25052422 (Version 1)
Quarter: 2025Q1

REPORT INFORMATION
  Report Type: Spontaneous
  Country: ES (occurrence: ES)
  Receive Date: 20250307
  Receipt Date: 20250307
  Transmission Date: 20250408
  Serious: Yes (Death)
  Sender: SHIONOGI
  Company Number: ES-shionogi-202500002571

PATIENT
  Age: 75 Year
  Sex: Female

DRUGS (40)
  1. CEFIDEROCOL [Suspect]
     Active Substance: CEFIDEROCOL
     Indication: Skin infection
  2. CEFIDEROCOL [Suspect]
     Active Substance: CEFIDEROCOL
     Indication: Bacteraemia
  3. CEFIDEROCOL [Suspect]
     Active Substance: CEFIDEROCOL
     Indication: Septic shock
  4. CEFIDEROCOL [Suspect]
     Active Substance: CEFIDEROCOL
     Indication: Pseudomonas infection
  5. CEFIDEROCOL [Suspect]
     Active Substance: CEFIDEROCOL
     Indication: Multiple-drug resistance
  6. CEFTOLOZANE SULFATE\TAZOBACTAM SODIUM [Suspect]
     Active Substance: CEFTOLOZANE SULFATE\TAZOBACTAM SODIUM
     Indication: Skin infection
  7. CEFTOLOZANE SULFATE\TAZOBACTAM SODIUM [Suspect]
     Active Substance: CEFTOLOZANE SULFATE\TAZOBACTAM SODIUM
     Indication: Bacteraemia
  8. CEFTOLOZANE SULFATE\TAZOBACTAM SODIUM [Suspect]
     Active Substance: CEFTOLOZANE SULFATE\TAZOBACTAM SODIUM
     Indication: Septic shock
  9. CEFTOLOZANE SULFATE\TAZOBACTAM SODIUM [Suspect]
     Active Substance: CEFTOLOZANE SULFATE\TAZOBACTAM SODIUM
     Indication: Pseudomonas infection
  10. CEFTOLOZANE SULFATE\TAZOBACTAM SODIUM [Suspect]
     Active Substance: CEFTOLOZANE SULFATE\TAZOBACTAM SODIUM
     Indication: Multiple-drug resistance
  11. AVIBACTAM SODIUM\CEFTAZIDIME [Suspect]
     Active Substance: AVIBACTAM SODIUM\CEFTAZIDIME
     Indication: Skin infection
  12. AVIBACTAM SODIUM\CEFTAZIDIME [Suspect]
     Active Substance: AVIBACTAM SODIUM\CEFTAZIDIME
     Indication: Bacteraemia
  13. AVIBACTAM SODIUM\CEFTAZIDIME [Suspect]
     Active Substance: AVIBACTAM SODIUM\CEFTAZIDIME
     Indication: Septic shock
  14. AVIBACTAM SODIUM\CEFTAZIDIME [Suspect]
     Active Substance: AVIBACTAM SODIUM\CEFTAZIDIME
     Indication: Pseudomonas infection
  15. AVIBACTAM SODIUM\CEFTAZIDIME [Suspect]
     Active Substance: AVIBACTAM SODIUM\CEFTAZIDIME
     Indication: Multiple-drug resistance
  16. MEROPENEM [Suspect]
     Active Substance: MEROPENEM
     Indication: Skin infection
  17. MEROPENEM [Suspect]
     Active Substance: MEROPENEM
     Indication: Bacteraemia
  18. MEROPENEM [Suspect]
     Active Substance: MEROPENEM
     Indication: Septic shock
  19. MEROPENEM [Suspect]
     Active Substance: MEROPENEM
     Indication: Pseudomonas infection
  20. MEROPENEM [Suspect]
     Active Substance: MEROPENEM
     Indication: Multiple-drug resistance
  21. IMIPENEM [Suspect]
     Active Substance: IMIPENEM
     Indication: Skin infection
  22. IMIPENEM [Suspect]
     Active Substance: IMIPENEM
     Indication: Bacteraemia
  23. IMIPENEM [Suspect]
     Active Substance: IMIPENEM
     Indication: Septic shock
  24. IMIPENEM [Suspect]
     Active Substance: IMIPENEM
     Indication: Pseudomonas infection
  25. IMIPENEM [Suspect]
     Active Substance: IMIPENEM
     Indication: Multiple-drug resistance
  26. COLISTIN [Suspect]
     Active Substance: COLISTIN
     Indication: Skin infection
  27. COLISTIN [Suspect]
     Active Substance: COLISTIN
     Indication: Bacteraemia
  28. COLISTIN [Suspect]
     Active Substance: COLISTIN
     Indication: Septic shock
  29. COLISTIN [Suspect]
     Active Substance: COLISTIN
     Indication: Pseudomonas infection
  30. COLISTIN [Suspect]
     Active Substance: COLISTIN
     Indication: Multiple-drug resistance
  31. CILASTATIN\IMIPENEM\RELEBACTAM [Suspect]
     Active Substance: CILASTATIN\IMIPENEM\RELEBACTAM
     Indication: Skin infection
     Route: 042
  32. CILASTATIN\IMIPENEM\RELEBACTAM [Suspect]
     Active Substance: CILASTATIN\IMIPENEM\RELEBACTAM
     Indication: Bacteraemia
  33. CILASTATIN\IMIPENEM\RELEBACTAM [Suspect]
     Active Substance: CILASTATIN\IMIPENEM\RELEBACTAM
     Indication: Septic shock
  34. CILASTATIN\IMIPENEM\RELEBACTAM [Suspect]
     Active Substance: CILASTATIN\IMIPENEM\RELEBACTAM
     Indication: Pseudomonas infection
  35. CILASTATIN\IMIPENEM\RELEBACTAM [Suspect]
     Active Substance: CILASTATIN\IMIPENEM\RELEBACTAM
     Indication: Multiple-drug resistance
  36. CILASTATIN\IMIPENEM\RELEBACTAM [Suspect]
     Active Substance: CILASTATIN\IMIPENEM\RELEBACTAM
     Indication: Skin infection
     Route: 042
  37. CILASTATIN\IMIPENEM\RELEBACTAM [Suspect]
     Active Substance: CILASTATIN\IMIPENEM\RELEBACTAM
     Indication: Bacteraemia
  38. CILASTATIN\IMIPENEM\RELEBACTAM [Suspect]
     Active Substance: CILASTATIN\IMIPENEM\RELEBACTAM
     Indication: Septic shock
  39. CILASTATIN\IMIPENEM\RELEBACTAM [Suspect]
     Active Substance: CILASTATIN\IMIPENEM\RELEBACTAM
     Indication: Pseudomonas infection
  40. CILASTATIN\IMIPENEM\RELEBACTAM [Suspect]
     Active Substance: CILASTATIN\IMIPENEM\RELEBACTAM
     Indication: Multiple-drug resistance

REACTIONS (2)
  - Death [Fatal]
  - Drug ineffective [Unknown]
